FAERS Safety Report 23712005 (Version 2)
Quarter: 2024Q2

REPORT INFORMATION
  Report Type: Spontaneous
  Country: EG (occurrence: EG)
  Receive Date: 20240405
  Receipt Date: 20240410
  Transmission Date: 20240716
  Serious: Yes (Disabling, Other)
  Sender: FDA-Public Use
  Company Number: EG-PFIZER INC-PV202400043110

PATIENT
  Age: 56 Year
  Sex: Female

DRUGS (4)
  1. CARBOPLATIN [Suspect]
     Active Substance: CARBOPLATIN
     Dosage: 600 MG DILUTED IN 500 ML
     Dates: start: 20240218
  2. CARBOPLATIN [Suspect]
     Active Substance: CARBOPLATIN
     Dosage: 600 MG DILUTED IN 500 ML
  3. PACLITAXEL [Suspect]
     Active Substance: PACLITAXEL
     Indication: Breast cancer
     Dosage: 145 MG DILUTED IN 250 ML NORMAL SALINE OVER 1 HR (CYCLE 1 WEEK 1)
     Dates: start: 20240218
  4. PACLITAXEL [Suspect]
     Active Substance: PACLITAXEL
     Dosage: 140 MG (CYCLE 1 WEEK 2)
     Dates: start: 20240225

REACTIONS (8)
  - Dysgeusia [Not Recovered/Not Resolved]
  - Nausea [Recovered/Resolved]
  - Vomiting [Recovered/Resolved]
  - Feeding disorder [Not Recovered/Not Resolved]
  - Arthralgia [Not Recovered/Not Resolved]
  - Myalgia [Not Recovered/Not Resolved]
  - Gait disturbance [Not Recovered/Not Resolved]
  - Insomnia [Not Recovered/Not Resolved]

NARRATIVE: CASE EVENT DATE: 20240101
